FAERS Safety Report 8465842-4 (Version None)
Quarter: 2012Q2

REPORT INFORMATION
  Report Type: 
  Country: None (occurrence: None)
  Receive Date: 20120626
  Receipt Date: 20120619
  Transmission Date: 20120825
  Serious: Yes (Other)
  Sender: FDA-Public Use
  Company Number: GB-B.I. PHARMACEUTICALS,INC./RIDGEFIELD-2012-UK-00815UK

PATIENT
  Sex: Female

DRUGS (2)
  1. OMEPRAZOLE [Concomitant]
  2. MOBIC [Suspect]
     Dosage: TOOK 2 TABLETS ON SOME DAYS

REACTIONS (5)
  - HEPATOMEGALY [None]
  - HIATUS HERNIA [None]
  - MALAISE [None]
  - ABDOMINAL DISTENSION [None]
  - NAUSEA [None]
